FAERS Safety Report 5587444-X (Version None)
Quarter: 2008Q1

REPORT INFORMATION
  Report Type: 
  Country: None (occurrence: None)
  Receive Date: 20080110
  Receipt Date: 20080107
  Transmission Date: 20080703
  Serious: Yes (Life-Threatening, Hospitalization)
  Sender: FDA-Public Use
  Company Number: JP-BOEHRINGER INGELHEIM PHARMACEUTICALS, INC.-2007-BP-25091NB

PATIENT
  Sex: Female
  Weight: 31 kg

DRUGS (5)
  1. BI-SIFROL TABLETS [Suspect]
     Indication: PARKINSON'S DISEASE
     Dates: start: 20071106
  2. FP [Suspect]
     Indication: PARKINSON'S DISEASE
     Dates: start: 20071106
  3. GASTER [Suspect]
     Indication: GASTROSTOMY
     Route: 042
     Dates: start: 20071106, end: 20071108
  4. RASENAZOLIN [Suspect]
     Indication: GASTROSTOMY
     Route: 042
     Dates: start: 20071106, end: 20071108
  5. MADOPAR [Concomitant]
     Indication: PARKINSON'S DISEASE
     Route: 048

REACTIONS (3)
  - BLOOD PRESSURE FLUCTUATION [None]
  - FEMUR FRACTURE [None]
  - ORAL INTAKE REDUCED [None]
